FAERS Safety Report 16972558 (Version 2)
Quarter: 2019Q4

REPORT INFORMATION
  Report Type: Report from Study
  Country: None (occurrence: CA)
  Receive Date: 20191030
  Receipt Date: 20191128
  Transmission Date: 20200122
  Serious: Yes (Other)
  Sender: FDA-Public Use
  Company Number: CA-ABBVIE-19K-028-2977975-00

PATIENT
  Age: 70 Year
  Sex: Female

DRUGS (1)
  1. HUMIRA [Suspect]
     Active Substance: ADALIMUMAB
     Indication: CROHN^S DISEASE
     Route: 058
     Dates: start: 20170104

REACTIONS (8)
  - Abdominal pain [Unknown]
  - Cholangitis chronic [Unknown]
  - Biliary colic [Recovering/Resolving]
  - Incision site abscess [Not Recovered/Not Resolved]
  - Crohn^s disease [Recovering/Resolving]
  - Small intestinal obstruction [Unknown]
  - Hernia [Recovering/Resolving]
  - Abscess rupture [Not Recovered/Not Resolved]

NARRATIVE: CASE EVENT DATE: 2019
